FAERS Safety Report 18642339 (Version 1)
Quarter: 2020Q4

REPORT INFORMATION
  Report Type: Report from Study
  Country: GB (occurrence: GB)
  Receive Date: 20201221
  Receipt Date: 20201221
  Transmission Date: 20210114
  Serious: Yes (Other)
  Sender: FDA-Public Use
  Company Number: NVSC2020GB335858

PATIENT
  Sex: Male

DRUGS (1)
  1. HYRIMOZ [Suspect]
     Active Substance: ADALIMUMAB-ADAZ
     Indication: AXIAL SPONDYLOARTHRITIS
     Dosage: 1 DF, Q3W (ROUTE: AS DIRECTED)
     Route: 065

REACTIONS (3)
  - Inappropriate schedule of product administration [Unknown]
  - Uveitis [Recovered/Resolved]
  - Eye pain [Recovered/Resolved]
